FAERS Safety Report 25166435 (Version 2)
Quarter: 2025Q2

REPORT INFORMATION
  Report Type: Spontaneous
  Country: US (occurrence: US)
  Receive Date: 20250407
  Receipt Date: 20250627
  Transmission Date: 20250717
  Serious: Yes (Death, Hospitalization, Other)
  Sender: UNICHEM
  Company Number: US-UNICHEM LABORATORIES LIMITED-UNI-2025-US-001744

PATIENT

DRUGS (1)
  1. METFORMIN [Suspect]
     Active Substance: METFORMIN HYDROCHLORIDE
     Indication: Product used for unknown indication
     Route: 048

REACTIONS (8)
  - Intentional overdose [Fatal]
  - Vasoplegia syndrome [Fatal]
  - Cardiac arrest [Fatal]
  - Acidosis [Fatal]
  - Electrocardiogram QT prolonged [Unknown]
  - Abdominal pain [Unknown]
  - Agitation [Unknown]
  - Hypoglycaemia [Unknown]
